FAERS Safety Report 6925143-X (Version None)
Quarter: 2010Q3

REPORT INFORMATION
  Report Type: 
  Country: None (occurrence: None)
  Receive Date: 20100816
  Receipt Date: 20100810
  Transmission Date: 20110219
  Serious: Yes (Hospitalization)
  Sender: FDA-Public Use
  Company Number: GB-EISAI INC.-E7273-00158-CLI-GB

PATIENT
  Sex: Female

DRUGS (5)
  1. TARGRETIN [Suspect]
     Route: 048
     Dates: start: 20100127, end: 20100513
  2. GEMCITABINE [Suspect]
     Route: 041
     Dates: end: 20100414
  3. LEVOTHYROXINE SODIUM [Concomitant]
     Dates: start: 20100315, end: 20100517
  4. ATORVASTATIN [Concomitant]
     Dates: start: 20100315, end: 20100517
  5. FENOFIBRATE [Concomitant]
     Dates: start: 20100121, end: 20100604

REACTIONS (2)
  - FATIGUE [None]
  - MALIGNANT NEOPLASM PROGRESSION [None]
